FAERS Safety Report 24250598 (Version 1)
Quarter: 2024Q3

REPORT INFORMATION
  Report Type: Spontaneous
  Country: US (occurrence: US)
  Receive Date: 20240826
  Receipt Date: 20240826
  Transmission Date: 20241017
  Serious: No
  Sender: GALDERMA
  Company Number: US-GALDERMA-US2024012089

PATIENT

DRUGS (7)
  1. PROACTIV MD ADAPALENE ACNE TREATMENT [Suspect]
     Active Substance: ADAPALENE
     Indication: Acne pustular
     Dosage: 1 DOSAGE FORM, QD
     Route: 061
     Dates: start: 202404, end: 20240623
  2. Proactiv MD Ultra Gentle Cleanser [Concomitant]
     Indication: Acne pustular
     Dosage: 1 DOSAGE FORM, QD
     Route: 061
     Dates: start: 202404, end: 20240623
  3. COSMETICS [Concomitant]
     Active Substance: COSMETICS
     Indication: Acne pustular
     Dosage: 1 UNK, QD
     Route: 061
     Dates: start: 202404, end: 20240623
  4. CYANOCOBALAMIN [Concomitant]
     Active Substance: CYANOCOBALAMIN
     Indication: Product used for unknown indication
  5. ZINC [ZINC OXIDE] [Concomitant]
     Indication: Product used for unknown indication
  6. MAGNESIUM [Concomitant]
     Active Substance: MAGNESIUM
     Indication: Product used for unknown indication
  7. VITAMIN D NOS [Concomitant]
     Active Substance: CHOLECALCIFEROL\ERGOCALCIFEROL
     Indication: Product used for unknown indication

REACTIONS (7)
  - Erythema [Recovered/Resolved]
  - Dry skin [Recovered/Resolved]
  - Skin exfoliation [Recovered/Resolved]
  - Flushing [Recovered/Resolved]
  - Dermatitis [Recovered/Resolved]
  - Drug ineffective [Unknown]
  - Product use in unapproved indication [Recovered/Resolved]

NARRATIVE: CASE EVENT DATE: 20240401
